FAERS Safety Report 23204495 (Version 2)
Quarter: 2024Q1

REPORT INFORMATION
  Report Type: Spontaneous
  Country: US (occurrence: US)
  Receive Date: 20231120
  Receipt Date: 20240122
  Transmission Date: 20240409
  Serious: Yes (Other)
  Sender: FDA-Public Use
  Company Number: US-REGENERON PHARMACEUTICALS, INC.-2023-139496

PATIENT
  Sex: Male

DRUGS (1)
  1. EYLEA [Suspect]
     Active Substance: AFLIBERCEPT
     Indication: Product used for unknown indication
     Dosage: UNK, INTO LEFT EYE, FORMULATION: UNKNOWN
     Route: 031

REACTIONS (1)
  - Intra-ocular injection complication [Unknown]

NARRATIVE: CASE EVENT DATE: 20231115
